FAERS Safety Report 18418058 (Version 1)
Quarter: 2020Q4

REPORT INFORMATION
  Report Type: Spontaneous
  Country: US (occurrence: US)
  Receive Date: 20201023
  Receipt Date: 20201023
  Transmission Date: 20210114
  Serious: Yes (Other)
  Sender: FDA-Public Use
  Company Number: US-GW PHARMA-202010USGW03605

PATIENT

DRUGS (1)
  1. EPIDIOLEX [Suspect]
     Active Substance: CANNABIDIOL
     Indication: EPILEPSY
     Dosage: 600 MILLIGRAM, BID (FIRST SHIPPED ON 10 JUN 2020 AND LAST SHIPPED ON 12 AUG 2020)
     Route: 048
     Dates: start: 202006, end: 202008

REACTIONS (2)
  - Diarrhoea [Unknown]
  - Seizure [Unknown]

NARRATIVE: CASE EVENT DATE: 2020
